FAERS Safety Report 5455013-8 (Version None)
Quarter: 2007Q3

REPORT INFORMATION
  Report Type: 
  Country: None (occurrence: None)
  Receive Date: 20070913
  Receipt Date: 20070830
  Transmission Date: 20080115
  Serious: Yes (Hospitalization)
  Sender: FDA-Public Use
  Company Number: 060001L07IND

PATIENT
  Age: 22 Year
  Sex: Female

DRUGS (1)
  1. CLOMIPHENE CITRATE [Suspect]
     Indication: INFERTILITY FEMALE
     Dosage: ORAL
     Route: 048

REACTIONS (4)
  - OVARIAN CYST RUPTURED [None]
  - OVARIAN ENLARGEMENT [None]
  - OVARIAN HYPERSTIMULATION SYNDROME [None]
  - PERITONEAL HAEMORRHAGE [None]
